FAERS Safety Report 20808358 (Version 1)
Quarter: 2022Q2

REPORT INFORMATION
  Report Type: Other
  Country: US (occurrence: None)
  Receive Date: 20220510
  Receipt Date: 20220510
  Transmission Date: 20220721
  Serious: Yes (Death)
  Sender: FDA-Public Use
  Company Number: US-ROCHE-3089626

PATIENT
  Sex: Male

DRUGS (3)
  1. AVASTIN [Suspect]
     Active Substance: BEVACIZUMAB
     Indication: Metastases to liver
     Dosage: INFUSE 431 MILLIGRAMS INTRAVENOUSLY EVERY 2 WEEKS, FORMULATION : VIAL
     Route: 042
  2. AVASTIN [Suspect]
     Active Substance: BEVACIZUMAB
     Indication: Cholangiocarcinoma
  3. AVASTIN [Suspect]
     Active Substance: BEVACIZUMAB
     Indication: Gallbladder cancer

REACTIONS (1)
  - Death [Fatal]
